FAERS Safety Report 8383234 (Version 2)
Quarter: 2013Q2

REPORT INFORMATION
  Report Type: Spontaneous
  Country: US (occurrence: None)
  Receive Date: 20111221
  Receipt Date: 20121227
  Transmission Date: 20140414
  Serious: Yes (Other)
  Sender: FDA-Public Use
  Company Number: PHHY2011US04724

PATIENT
  Sex: Male
  Weight: 78 kg

DRUGS (17)
  1. EXJADE [Suspect]
     Indication: MYELODYSPLASTIC SYNDROME
     Dosage: 1500 MG, DAILY, ORAL, 1000 MG, DAILY, ORAL
     Route: 048
     Dates: start: 20110104
  2. OXYCODONE (OXYCODONE) [Concomitant]
  3. CHLORTHALIDONE [Concomitant]
  4. TRAZODONE HYDROCHLORIDE [Concomitant]
  5. SUDAFED 12 HOUR [Concomitant]
  6. CRESTIR (ROSUVASTATIN CALCIUM) [Concomitant]
  7. CENTRUM SILVER (ASCORBIC ACID, CALCIUM, MINERALS NOS, RETINOL, TOCOPHERYL ACETATE, VITAMIN B NOS, VI [Concomitant]
  8. FKIBASE (FLUTICASONE PROPIONATE) [Concomitant]
  9. DILTIAZEM [Concomitant]
  10. FLOMAX (TAMSULOSIN HYDROCHLORIDE) [Concomitant]
  11. ENALAPRIL [Concomitant]
  12. ADVAIR HFA [Concomitant]
  13. GLUCOSAMINE (GLUCOSAMINE) [Concomitant]
  14. AVEENO LOTION [Concomitant]
  15. LASIX [Concomitant]
  16. VUDAZA (AZACITIDINE) [Concomitant]
  17. NEULASTA [Concomitant]

REACTIONS (4)
  - WHITE BLOOD CELL COUNT DECREASED [None]
  - DIARRHOEA [None]
  - Renal impairment [None]
  - Neutropenia [None]
